FAERS Safety Report 15839933 (Version 1)
Quarter: 2019Q1

REPORT INFORMATION
  Report Type: Spontaneous
  Country: US (occurrence: US)
  Receive Date: 20190117
  Receipt Date: 20190117
  Transmission Date: 20190417
  Serious: Yes (Other)
  Sender: FDA-Public Use
  Company Number: US-PFIZER INC-2019019601

PATIENT
  Age: 51 Year
  Sex: Female
  Weight: 117.9 kg

DRUGS (4)
  1. OXTELLAR [Concomitant]
     Indication: SEIZURE
     Dosage: UNK
     Dates: start: 20181211
  2. LYRICA [Suspect]
     Active Substance: PREGABALIN
     Indication: NEUROPATHY PERIPHERAL
     Dosage: 150 MG, 2X/DAY
     Route: 048
     Dates: start: 201812
  3. LYRICA [Suspect]
     Active Substance: PREGABALIN
     Indication: PAIN
  4. OXTELLAR [Concomitant]
     Indication: NEUROPATHY PERIPHERAL

REACTIONS (3)
  - Burning sensation [Unknown]
  - Drug dependence [Not Recovered/Not Resolved]
  - Drug effect incomplete [Unknown]
